FAERS Safety Report 8579663-5 (Version None)
Quarter: 2012Q3

REPORT INFORMATION
  Report Type: 
  Country: None (occurrence: None)
  Receive Date: 20120808
  Receipt Date: 20120807
  Transmission Date: 20120928
  Serious: Yes (Other)
  Sender: FDA-Public Use
  Company Number: US-ROCHE-1064991

PATIENT
  Sex: Female
  Weight: 61.29 kg

DRUGS (9)
  1. ACCUTANE [Suspect]
     Route: 065
     Dates: start: 19921007, end: 19921101
  2. IBUPROFEN [Concomitant]
  3. ACCUTANE [Suspect]
     Route: 065
     Dates: start: 19881121, end: 19890101
  4. ACCUTANE [Suspect]
     Route: 065
     Dates: start: 19900226, end: 19900701
  5. ACCUTANE [Suspect]
     Route: 065
     Dates: start: 19910309, end: 19920331
  6. ACCUTANE [Suspect]
     Indication: ACNE CYSTIC
     Route: 065
     Dates: start: 19870914, end: 19880227
  7. ACCUTANE [Suspect]
     Route: 065
     Dates: start: 20051201, end: 20060401
  8. ACCUTANE [Suspect]
     Route: 065
     Dates: start: 19880827, end: 19880924
  9. ACCUTANE [Suspect]
     Route: 065
     Dates: start: 20051018, end: 20060626

REACTIONS (9)
  - DEPRESSION [None]
  - SUICIDAL IDEATION [None]
  - DRY EYE [None]
  - AFFECTIVE DISORDER [None]
  - RETINAL DETACHMENT [None]
  - CATARACT [None]
  - INFLAMMATORY BOWEL DISEASE [None]
  - BIPOLAR DISORDER [None]
  - IRRITABLE BOWEL SYNDROME [None]
